FAERS Safety Report 14229368 (Version 3)
Quarter: 2017Q4

REPORT INFORMATION
  Report Type: Spontaneous
  Country: US (occurrence: US)
  Receive Date: 20171128
  Receipt Date: 20171227
  Transmission Date: 20180321
  Serious: No
  Sender: FDA-Public Use
  Company Number: US-PFIZER INC-2017509152

PATIENT
  Age: 60 Year
  Sex: Female

DRUGS (3)
  1. DIPHENOXYLATE [Concomitant]
     Active Substance: DIPHENOXYLATE
     Dosage: UNK
  2. ATROPINE SULFATE/DIPHENOXYLATE HYDROCHLORIDE [Suspect]
     Active Substance: ATROPINE SULFATE\DIPHENOXYLATE HYDROCHLORIDE
     Indication: DIARRHOEA
     Dosage: 2 TABLETS 4 TIMES A DAY
     Route: 048
  3. ATROPINE SULFATE/DIPHENOXYLATE HYDROCHLORIDE [Suspect]
     Active Substance: ATROPINE SULFATE\DIPHENOXYLATE HYDROCHLORIDE
     Dosage: 20 MG, UNK (TWICE)

REACTIONS (5)
  - Dry skin [Not Recovered/Not Resolved]
  - Lethargy [Unknown]
  - Flushing [Recovered/Resolved]
  - Respiratory disorder [Not Recovered/Not Resolved]
  - Product use issue [Unknown]
